FAERS Safety Report 12797838 (Version 1)
Quarter: 2016Q3

REPORT INFORMATION
  Report Type: Spontaneous
  Country: US (occurrence: US)
  Receive Date: 20160929
  Receipt Date: 20160929
  Transmission Date: 20161109
  Serious: No
  Sender: FDA-Public Use
  Company Number: None

PATIENT
  Age: 27 Year
  Sex: Male

DRUGS (1)
  1. TRUVADA [Suspect]
     Active Substance: EMTRICITABINE\TENOFOVIR DISOPROXIL FUMARATE
     Indication: HIV INFECTION
     Dosage: 200-300MG QD PO
     Route: 048
     Dates: start: 20160820, end: 20160929

REACTIONS (2)
  - Night sweats [None]
  - Myalgia [None]

NARRATIVE: CASE EVENT DATE: 20160929
